FAERS Safety Report 7258612-6 (Version None)
Quarter: 2011Q1

REPORT INFORMATION
  Report Type: 
  Country: None (occurrence: None)
  Receive Date: 20110129
  Receipt Date: 20100502
  Transmission Date: 20110831
  Serious: No
  Sender: FDA-Public Use
  Company Number: US-ABBOTT-09P-163-0566771-00

PATIENT
  Sex: Female
  Weight: 59.02 kg

DRUGS (10)
  1. MULTIVITAMIN [Concomitant]
     Indication: ROUTINE HEALTH MAINTENANCE
  2. ASCORBIC ACID [Concomitant]
     Indication: ROUTINE HEALTH MAINTENANCE
  3. LORATADINE [Concomitant]
     Indication: HYPERSENSITIVITY
  4. HUMIRA [Suspect]
     Indication: CROHN'S DISEASE
     Dates: start: 20090101
  5. FLOURAGEN 3  PROBIOTIC [Concomitant]
     Indication: ROUTINE HEALTH MAINTENANCE
  6. PREVACID [Concomitant]
     Indication: GASTROOESOPHAGEAL REFLUX DISEASE
  7. FOLATE [Concomitant]
     Indication: ROUTINE HEALTH MAINTENANCE
  8. CIPRO [Concomitant]
     Indication: FISTULA
     Dates: start: 20080101
  9. HUMIRA [Suspect]
  10. PREVACID [Concomitant]
     Indication: OESOPHAGEAL STENOSIS

REACTIONS (5)
  - RASH [None]
  - HEADACHE [None]
  - COUGH [None]
  - NASOPHARYNGITIS [None]
  - PRURITUS [None]
